FAERS Safety Report 9132922 (Version 4)
Quarter: 2013Q4

REPORT INFORMATION
  Report Type: Spontaneous
  Country: GB (occurrence: GB)
  Receive Date: 20130301
  Receipt Date: 20131226
  Transmission Date: 20140711
  Serious: Yes (Disabling)
  Sender: FDA-Public Use
  Company Number: GB-ROCHE-1196983

PATIENT
  Age: 89 Year
  Sex: Male

DRUGS (2)
  1. LUCENTIS [Suspect]
     Indication: AGE-RELATED MACULAR DEGENERATION
     Route: 050
     Dates: start: 201111
  2. LUCENTIS [Suspect]
     Route: 050
     Dates: start: 20120123

REACTIONS (2)
  - Age-related macular degeneration [Recovered/Resolved with Sequelae]
  - Visual acuity reduced [Unknown]
